FAERS Safety Report 15772556 (Version 3)
Quarter: 2021Q4

REPORT INFORMATION
  Report Type: Spontaneous
  Country: US (occurrence: US)
  Receive Date: 20181228
  Receipt Date: 20211015
  Transmission Date: 20220303
  Serious: No
  Sender: FDA-Public Use
  Company Number: US-SA-2018SA395663

PATIENT
  Age: 17 Year
  Sex: Female

DRUGS (1)
  1. LUMIZYME [Suspect]
     Active Substance: ALGLUCOSIDASE ALFA
     Indication: Glycogen storage disease type II
     Dosage: 600 MG, QOW
     Route: 041
     Dates: start: 20181118, end: 20210916

REACTIONS (8)
  - Illness [Unknown]
  - Feeling abnormal [Unknown]
  - COVID-19 [Unknown]
  - Hypotension [Unknown]
  - Diarrhoea [Unknown]
  - Lethargy [Unknown]
  - Asthenia [Unknown]
  - Product dose omission issue [Unknown]

NARRATIVE: CASE EVENT DATE: 20190412
